FAERS Safety Report 13699907 (Version 1)
Quarter: 2017Q2

REPORT INFORMATION
  Report Type: Spontaneous
  Country: JP (occurrence: JP)
  Receive Date: 20170629
  Receipt Date: 20170629
  Transmission Date: 20170830
  Serious: Yes (Other)
  Sender: FDA-Public Use
  Company Number: JP-ROCHE-1957244

PATIENT
  Age: 7 Decade
  Sex: Female

DRUGS (2)
  1. RANMARK [Concomitant]
     Active Substance: DENOSUMAB
  2. BONVIVA [Suspect]
     Active Substance: IBANDRONATE SODIUM
     Indication: PRODUCT USED FOR UNKNOWN INDICATION
     Route: 042

REACTIONS (2)
  - Neoplasm malignant [Unknown]
  - Metastases to bone [Unknown]
